FAERS Safety Report 5988439-4 (Version None)
Quarter: 2008Q4

REPORT INFORMATION
  Report Type: 
  Country: None (occurrence: None)
  Receive Date: 20081204
  Receipt Date: 20080908
  Transmission Date: 20090506
  Serious: Yes (Hospitalization)
  Sender: FDA-Public Use
  Company Number: DSA_32433_2008

PATIENT
  Age: 94 Year
  Sex: Female

DRUGS (10)
  1. ENALAPRIL MALEATE [Suspect]
     Indication: DRUG USE FOR UNKNOWN INDICATION
     Dosage: 20 MG QD ORAL
     Route: 048
     Dates: end: 20080727
  2. AMILORIDE HYDROCHLORIDE [Suspect]
     Indication: DRUG USE FOR UNKNOWN INDICATION
     Dosage: 1 DF QD ORAL
     Route: 048
     Dates: end: 20080727
  3. FORLAX [Concomitant]
  4. NITROGLYCERIN [Concomitant]
  5. RABEPRAZOLE SODIUM [Concomitant]
  6. TEMESTA /00273201/ [Concomitant]
  7. THERALENE [Concomitant]
  8. VASTAREL [Concomitant]
  9. ZANIDIP [Concomitant]
  10. ACEBUTOLOL HYDROCHLORIDE [Concomitant]

REACTIONS (5)
  - BRADYPHRENIA [None]
  - CONFUSIONAL STATE [None]
  - FALL [None]
  - HYPONATRAEMIA [None]
  - URINARY INCONTINENCE [None]
